FAERS Safety Report 6140078-0 (Version None)
Quarter: 2009Q2

REPORT INFORMATION
  Report Type: 
  Country: None (occurrence: None)
  Receive Date: 20090401
  Receipt Date: 20090319
  Transmission Date: 20091009
  Serious: Yes (Death, Other)
  Sender: FDA-Public Use
  Company Number: FR-ELI_LILLY_AND_COMPANY-FR200903005070

PATIENT
  Sex: Male

DRUGS (1)
  1. ZYPREXA [Suspect]
     Route: 048

REACTIONS (2)
  - COMPLETED SUICIDE [None]
  - WEIGHT INCREASED [None]
